FAERS Safety Report 9615071 (Version 1)
Quarter: 2013Q4

REPORT INFORMATION
  Report Type: Spontaneous
  Country: US (occurrence: US)
  Receive Date: 20131011
  Receipt Date: 20131011
  Transmission Date: 20140711
  Serious: No
  Sender: FDA-Public Use
  Company Number: US-PFIZER INC-2013291641

PATIENT
  Age: 30 Year
  Sex: Female
  Weight: 99.77 kg

DRUGS (3)
  1. EFFEXOR [Suspect]
     Indication: DEPRESSION
     Dosage: 225 MG, 1X/DAY
     Route: 048
     Dates: start: 201305, end: 201309
  2. EFFEXOR [Suspect]
     Dosage: 150 MG, 1X/DAY
     Route: 048
     Dates: start: 201309, end: 201310
  3. ORTHO TRI-CYCLEN [Concomitant]
     Indication: CONTRACEPTION
     Dosage: UNK

REACTIONS (3)
  - Drug withdrawal syndrome [Recovered/Resolved]
  - Night sweats [Recovered/Resolved]
  - Heart rate increased [Recovered/Resolved]
